FAERS Safety Report 25656232 (Version 1)
Quarter: 2025Q3

REPORT INFORMATION
  Report Type: Spontaneous
  Country: US (occurrence: US)
  Receive Date: 20250807
  Receipt Date: 20250807
  Transmission Date: 20251020
  Serious: Yes (Other)
  Sender: AMGEN
  Company Number: US-AMGEN-USASP2025152022

PATIENT

DRUGS (6)
  1. RITUXIMAB [Suspect]
     Active Substance: RITUXIMAB
     Indication: Diffuse large B-cell lymphoma
     Route: 065
  2. PREDNISONE [Suspect]
     Active Substance: PREDNISONE
     Indication: Diffuse large B-cell lymphoma
     Route: 065
  3. ETOPOSIDE [Suspect]
     Active Substance: ETOPOSIDE
     Indication: Diffuse large B-cell lymphoma
     Dosage: 50 MILLIGRAM/SQ. METER, QD (200 MG/M2 PER CYCLE)) CONTINUOUS INFUSION
     Route: 065
  4. VINCRISTINE [Suspect]
     Active Substance: VINCRISTINE
     Indication: Diffuse large B-cell lymphoma
     Dosage: 0.4 MILLIGRAM/SQ. METER, QD (1.6 MG/M2 PER CYCLE) CONTINUOUS INFUSION
     Route: 065
  5. DOXORUBICIN [Suspect]
     Active Substance: DOXORUBICIN
     Indication: Diffuse large B-cell lymphoma
     Dosage: 10 MILLIGRAM/SQ. METER, QD (40 MG/M2 PER CYCLE) CONTINUOUS INFUSION
     Route: 065
  6. CYCLOPHOSPHAMIDE [Concomitant]
     Active Substance: CYCLOPHOSPHAMIDE
     Indication: Diffuse large B-cell lymphoma
     Route: 065

REACTIONS (11)
  - Diffuse large B-cell lymphoma [Unknown]
  - Hypoxia [Unknown]
  - Tachycardia [Unknown]
  - Pruritus [Unknown]
  - Rash [Unknown]
  - Chest discomfort [Unknown]
  - Abdominal pain upper [Unknown]
  - Headache [Unknown]
  - Chills [Unknown]
  - Hypotension [Unknown]
  - Therapy partial responder [Unknown]
